FAERS Safety Report 6233757-8 (Version None)
Quarter: 2009Q2

REPORT INFORMATION
  Report Type: 
  Country: None (occurrence: None)
  Receive Date: 20090616
  Receipt Date: 20090616
  Transmission Date: 20091009
  Serious: Yes (Hospitalization)
  Sender: FDA-Public Use
  Company Number: None

PATIENT
  Age: 59 Year
  Sex: Male
  Weight: 80.2867 kg

DRUGS (2)
  1. AUGMENTIN [Suspect]
     Indication: CYSTITIS
     Dosage: 1 12 HRS PO
     Route: 048
     Dates: start: 20090405, end: 20090407
  2. METHYLDOPA [Suspect]
     Indication: BLOOD PRESSURE
     Dosage: 1 12 HRS PO
     Route: 048
     Dates: start: 20051207, end: 20060102

REACTIONS (6)
  - CALCULUS URINARY [None]
  - CYSTITIS ESCHERICHIA [None]
  - FEAR OF DEATH [None]
  - FOREIGN BODY TRAUMA [None]
  - MUSCLE CONTRACTIONS INVOLUNTARY [None]
  - TREMOR [None]
